FAERS Safety Report 13318740 (Version 3)
Quarter: 2017Q4

REPORT INFORMATION
  Report Type: Spontaneous
  Country: IT (occurrence: IT)
  Receive Date: 20170310
  Receipt Date: 20171027
  Transmission Date: 20180320
  Serious: Yes (Hospitalization)
  Sender: FDA-Public Use
  Company Number: IT-JNJFOC-20170308977

PATIENT

DRUGS (3)
  1. SIMEPREVIR [Suspect]
     Active Substance: SIMEPREVIR
     Indication: HEPATITIS C
     Route: 065
  2. SOFOSBUVIR [Suspect]
     Active Substance: SOFOSBUVIR
     Indication: HEPATITIS C
     Route: 065
  3. RIBAVIRIN. [Suspect]
     Active Substance: RIBAVIRIN
     Indication: HEPATITIS C
     Route: 065

REACTIONS (2)
  - Condition aggravated [Unknown]
  - Hyperbilirubinaemia [Unknown]
